FAERS Safety Report 25638335 (Version 1)
Quarter: 2025Q3

REPORT INFORMATION
  Report Type: Spontaneous
  Country: BR (occurrence: BR)
  Receive Date: 20250804
  Receipt Date: 20250804
  Transmission Date: 20251021
  Serious: Yes (Hospitalization, Other)
  Sender: BAYER HEALTHCARE PHARMACEUTICALS INC.
  Company Number: BR-BAYER-2025A100501

PATIENT
  Age: 39 Year
  Sex: Female
  Weight: 78 kg

DRUGS (2)
  1. GADOBUTROL [Suspect]
     Active Substance: GADOBUTROL
     Indication: Magnetic resonance imaging
     Route: 042
     Dates: start: 20250724, end: 20250724
  2. GADOBUTROL [Suspect]
     Active Substance: GADOBUTROL
     Indication: Uterine cancer

REACTIONS (3)
  - Respiratory distress [None]
  - Nasal congestion [None]
  - Eyelid oedema [None]

NARRATIVE: CASE EVENT DATE: 20250724
